FAERS Safety Report 21045573 (Version 2)
Quarter: 2024Q3

REPORT INFORMATION
  Report Type: Report from Study
  Country: CZ (occurrence: CZ)
  Receive Date: 20220706
  Receipt Date: 20240729
  Transmission Date: 20241017
  Serious: Yes (Death, Hospitalization, Other)
  Sender: JOHNSON AND JOHNSON
  Company Number: CZ-BAYER-2022A090993

PATIENT
  Age: 68 Year
  Sex: Male

DRUGS (18)
  1. XARELTO [Suspect]
     Active Substance: RIVAROXABAN
     Indication: Atrial fibrillation
     Dosage: 15 MG, QD
     Route: 048
     Dates: start: 20211130, end: 20220602
  2. FINERENONE [Suspect]
     Active Substance: FINERENONE
     Indication: Heart failure with reduced ejection fraction
     Dosage: 10 MG, QD
     Route: 048
     Dates: start: 20210602, end: 20210830
  3. FINERENONE [Suspect]
     Active Substance: FINERENONE
     Dosage: 20 MG, QD
     Route: 048
     Dates: start: 20210831, end: 20220605
  4. INDAPAMIDE [Concomitant]
     Active Substance: INDAPAMIDE
     Dosage: 1.5 MG, QD
     Route: 048
     Dates: start: 20210317
  5. SORBIFER DURULES [ASCORBIC ACID;FERROUS SULFATE] [Concomitant]
     Dosage: 320 MG, BID
     Route: 048
     Dates: start: 20211129
  6. PANTOPRAZOLE SODIUM [Concomitant]
     Active Substance: PANTOPRAZOLE SODIUM
     Dosage: 40 MG, QD
     Route: 048
     Dates: start: 20211129
  7. ALLOPURINOL [Concomitant]
     Active Substance: ALLOPURINOL
     Dosage: 100 MG, QD
     Route: 048
     Dates: start: 201512
  8. LIPANTHYL S [Concomitant]
     Dosage: 215 MG, QD
     Route: 048
     Dates: start: 20180820
  9. BISOPROLOL FUMARATE\PERINDOPRIL ARGININE [Concomitant]
     Active Substance: BISOPROLOL FUMARATE\PERINDOPRIL ARGININE
     Dosage: 10 MG DAILY
     Route: 048
     Dates: start: 20180719
  10. EZETIMIBE [Concomitant]
     Active Substance: EZETIMIBE
     Dosage: 10 MG, QD
     Route: 048
     Dates: start: 20200325
  11. SYNJARDY [Concomitant]
     Active Substance: EMPAGLIFLOZIN\METFORMIN HYDROCHLORIDE
     Dosage: 5 MG, BID
     Route: 048
     Dates: start: 20180820, end: 20220602
  12. MAGNESIUM CARBONATE\MAGNESIUM OXIDE [Concomitant]
     Active Substance: MAGNESIUM CARBONATE\MAGNESIUM OXIDE
     Dosage: 365 MG, QD
     Route: 048
     Dates: start: 201806
  13. LEUCOVORIN [Concomitant]
     Active Substance: LEUCOVORIN\LEUCOVORIN CALCIUM
     Dosage: 10 MG, QD
     Route: 048
     Dates: start: 201806
  14. CEFTRIAXONE [Concomitant]
     Active Substance: CEFTRIAXONE\CEFTRIAXONE SODIUM
     Dosage: UNK
  15. ENOXAPARIN SODIUM [Concomitant]
     Active Substance: ENOXAPARIN SODIUM
     Dosage: UNK
  16. FUROSEMIDE SODIUM [Concomitant]
     Active Substance: FUROSEMIDE SODIUM
     Dosage: UNK
     Route: 042
     Dates: start: 20220606
  17. PERINDOPRIL ARGININE [Concomitant]
     Active Substance: PERINDOPRIL ARGININE
     Indication: Cardiac failure
     Dosage: 10 MG, QD
     Route: 048
     Dates: start: 20180719
  18. BISOPROLOL [Concomitant]
     Active Substance: BISOPROLOL\BISOPROLOL FUMARATE
     Indication: Hypertension
     Dosage: 10 MG, QD
     Route: 048
     Dates: start: 20180719

REACTIONS (1)
  - Anaemia [Fatal]

NARRATIVE: CASE EVENT DATE: 20220602
